FAERS Safety Report 13888935 (Version 1)
Quarter: 2017Q3

REPORT INFORMATION
  Report Type: Spontaneous
  Country: US (occurrence: US)
  Receive Date: 20170822
  Receipt Date: 20170822
  Transmission Date: 20171127
  Serious: No
  Sender: FDA-Public Use
  Company Number: US-ROCHE-1211321

PATIENT
  Age: 4 Year
  Sex: Female

DRUGS (1)
  1. ACTEMRA [Suspect]
     Active Substance: TOCILIZUMAB
     Indication: STILL^S DISEASE
     Dosage: MOST RECENT DOSE ON DECEMBER 2012.
     Route: 065
     Dates: start: 201112

REACTIONS (7)
  - Rash [Unknown]
  - Liver function test abnormal [Unknown]
  - Arthralgia [Unknown]
  - Drug resistance [Unknown]
  - Liver function test increased [Not Recovered/Not Resolved]
  - Disease progression [Unknown]
  - Rash [Not Recovered/Not Resolved]
